FAERS Safety Report 13474233 (Version 1)
Quarter: 2017Q2

REPORT INFORMATION
  Report Type: Spontaneous
  Country: US (occurrence: US)
  Receive Date: 20170424
  Receipt Date: 20170424
  Transmission Date: 20170830
  Serious: Yes (Hospitalization, Other)
  Sender: FDA-Public Use
  Company Number: US-ELI_LILLY_AND_COMPANY-US201704006940

PATIENT
  Sex: Female

DRUGS (1)
  1. HUMULIN R [Suspect]
     Active Substance: INSULIN HUMAN
     Indication: PRODUCT USED FOR UNKNOWN INDICATION
     Dosage: UNK, UNKNOWN
     Route: 058

REACTIONS (12)
  - Neuropathy peripheral [Unknown]
  - Blood creatinine increased [Unknown]
  - Coronary artery disease [Unknown]
  - Urinary tract infection [Unknown]
  - Blood potassium increased [Unknown]
  - Infection [Unknown]
  - Dyslipidaemia [Unknown]
  - Urethral stenosis [Unknown]
  - Sepsis [Unknown]
  - Obesity [Unknown]
  - Nephropathy [Unknown]
  - Retinopathy [Unknown]
